FAERS Safety Report 15896329 (Version 2)
Quarter: 2019Q1

REPORT INFORMATION
  Report Type: Spontaneous
  Country: JP (occurrence: JP)
  Receive Date: 20190131
  Receipt Date: 20190313
  Transmission Date: 20190417
  Serious: Yes (Hospitalization)
  Sender: FDA-Public Use
  Company Number: JP-EISAI MEDICAL RESEARCH-EC-2019-051228

PATIENT
  Age: 80 Year
  Sex: Male

DRUGS (1)
  1. LENVIMA [Suspect]
     Active Substance: LENVATINIB
     Indication: HEPATOCELLULAR CARCINOMA
     Route: 048
     Dates: end: 20190123

REACTIONS (6)
  - C-reactive protein increased [Recovering/Resolving]
  - Aspartate aminotransferase increased [Recovering/Resolving]
  - Tumour lysis syndrome [Recovered/Resolved]
  - Blood lactate dehydrogenase increased [Recovering/Resolving]
  - Glomerular filtration rate decreased [Recovering/Resolving]
  - White blood cell count increased [Recovering/Resolving]
